FAERS Safety Report 25058013 (Version 1)
Quarter: 2025Q1

REPORT INFORMATION
  Report Type: Spontaneous
  Country: US (occurrence: None)
  Receive Date: 20250309
  Receipt Date: 20250309
  Transmission Date: 20250409
  Serious: Yes (Disabling, Other)
  Sender: FDA-CTU
  Company Number: None

PATIENT
  Age: 71 Year
  Sex: Female

DRUGS (1)
  1. VENLAFAXINE HCL [Suspect]
     Active Substance: VENLAFAXINE HYDROCHLORIDE
     Indication: Depression
     Dates: start: 19940101, end: 20230630

REACTIONS (5)
  - Panic attack [None]
  - Sleep deficit [None]
  - Anxiety [None]
  - Cerebral disorder [None]
  - Decreased appetite [None]

NARRATIVE: CASE EVENT DATE: 20230601
